FAERS Safety Report 15845319 (Version 3)
Quarter: 2019Q1

REPORT INFORMATION
  Report Type: Spontaneous
  Country: US (occurrence: US)
  Receive Date: 20190119
  Receipt Date: 20190225
  Transmission Date: 20190417
  Serious: Yes (Other)
  Sender: FDA-Public Use
  Company Number: US-AMGEN-USASP2019002490

PATIENT
  Age: 79 Year
  Sex: Female
  Weight: 52.61 kg

DRUGS (4)
  1. FLU [Concomitant]
     Active Substance: INFLUENZA VIRUS VACCINE
     Dates: start: 20181010
  2. PROLIA [Suspect]
     Active Substance: DENOSUMAB
     Indication: OSTEOPOROSIS POSTMENOPAUSAL
     Dosage: 60 MG, Q6MO
     Route: 065
     Dates: start: 20180921
  3. BENAZEPRIL [Concomitant]
     Active Substance: BENAZEPRIL HYDROCHLORIDE
     Indication: HYPERTENSION
     Dosage: UNK
     Dates: start: 20170124
  4. LEVOTHYROXINE. [Concomitant]
     Active Substance: LEVOTHYROXINE
     Indication: HYPOTHYROIDISM
     Dosage: 75 MG, QD

REACTIONS (8)
  - Weight increased [Not Recovered/Not Resolved]
  - Blood creatinine increased [Unknown]
  - Gait disturbance [Recovering/Resolving]
  - Blood calcium increased [Unknown]
  - Alopecia [Not Recovered/Not Resolved]
  - Polymyalgia rheumatica [Recovering/Resolving]
  - Alanine aminotransferase increased [Unknown]
  - Iron deficiency anaemia [Unknown]

NARRATIVE: CASE EVENT DATE: 20181224
